FAERS Safety Report 8632357 (Version 5)
Quarter: 2013Q1

REPORT INFORMATION
  Report Type: Spontaneous
  Country: JP (occurrence: JP)
  Receive Date: 20120625
  Receipt Date: 20130314
  Transmission Date: 20140127
  Serious: Yes (Other)
  Sender: FDA-Public Use
  Company Number: JP-PFIZER INC-2012149125

PATIENT
  Sex: Male

DRUGS (3)
  1. SUTENT [Suspect]
     Indication: METASTATIC RENAL CELL CARCINOMA
     Dosage: 12.5 MG, 1X/DAY, 4 WEEKS ON/2 WEEKS OFF
     Route: 048
     Dates: start: 2010
  2. SUTENT [Suspect]
     Dosage: 12.5 MG, 1X/DAY, 3 DAYS ON FOLLOWED BY 2 DAYS OFF
     Route: 048
     Dates: start: 201201
  3. SUTENT [Suspect]
     Dosage: 50 MG/DAY
     Route: 048

REACTIONS (14)
  - Penile abscess [Not Recovered/Not Resolved]
  - Haemorrhage subcutaneous [Unknown]
  - Melaena [Unknown]
  - Haemoglobin decreased [Unknown]
  - Malaise [Unknown]
  - Eczema [Unknown]
  - Skin exfoliation [Unknown]
  - Furuncle [Not Recovered/Not Resolved]
  - Diarrhoea [Not Recovered/Not Resolved]
  - Pyrexia [Unknown]
  - Pigmentation disorder [Unknown]
  - Thyroid function test abnormal [Unknown]
  - Disease progression [Unknown]
  - Metastatic renal cell carcinoma [Unknown]
